FAERS Safety Report 8498527-9 (Version None)
Quarter: 2012Q3

REPORT INFORMATION
  Report Type: 
  Country: None (occurrence: None)
  Receive Date: 20120709
  Receipt Date: 20120626
  Transmission Date: 20120928
  Serious: No
  Sender: FDA-Public Use
  Company Number: US-AMGEN-USASP2011028479

PATIENT
  Age: 42 Year
  Sex: Female

DRUGS (5)
  1. ENBREL [Suspect]
     Dosage: 50 MG, QWK
     Route: 058
     Dates: start: 20110915
  2. ADDERALL 5 [Concomitant]
     Dosage: 30 MG, BID
     Route: 048
  3. CLONAZEPAM [Concomitant]
     Dosage: 5 MG, QID
     Route: 048
  4. ENBREL [Suspect]
     Indication: PSORIASIS
     Dosage: 50 MG, 2 TIMES/WK
     Dates: start: 20110324
  5. PROPRANOLOL [Concomitant]
     Dosage: 30 MG, TID
     Route: 048

REACTIONS (8)
  - DECREASED APPETITE [None]
  - CHILLS [None]
  - DIZZINESS [None]
  - DIARRHOEA [None]
  - SOMNOLENCE [None]
  - NAUSEA [None]
  - PYREXIA [None]
  - FATIGUE [None]
